FAERS Safety Report 4785416-6 (Version None)
Quarter: 2005Q3

REPORT INFORMATION
  Report Type: 
  Country: None (occurrence: None)
  Receive Date: 20050929
  Receipt Date: 20050922
  Transmission Date: 20060218
  Serious: Yes (Hospitalization, Other)
  Sender: FDA-Public Use
  Company Number: 2005120765

PATIENT
  Age: 68 Year
  Sex: Female
  Weight: 86.1834 kg

DRUGS (8)
  1. CELEBREX [Suspect]
     Indication: OSTEOARTHRITIS
     Dosage: 200 MG (200 MG, 1 IN 1 D),ORAL
     Route: 048
     Dates: start: 20050101, end: 20050805
  2. BEXTRA [Suspect]
     Indication: OSTEOARTHRITIS
     Dosage: 1 IN 1 D), ORAL
     Route: 048
  3. TAMOXIFEN (TAMOXIFEN) [Suspect]
     Indication: BREAST CANCER
     Dates: end: 20050101
  4. FEMARA [Suspect]
     Indication: BREAST CANCER
     Dates: start: 20050101, end: 20050805
  5. DRUG, UNSPECIFIED (DRUG, UNSPECIFIED) [Suspect]
     Indication: ILL-DEFINED DISORDER
  6. PROTONEX (PANTOPRAZOLE) [Concomitant]
  7. EFFEXOR [Concomitant]
  8. ASA (ACETYSALICYLIC ACID) [Concomitant]

REACTIONS (3)
  - DEEP VEIN THROMBOSIS [None]
  - MALAISE [None]
  - PULMONARY THROMBOSIS [None]
